FAERS Safety Report 25482386 (Version 1)
Quarter: 2025Q2

REPORT INFORMATION
  Report Type: Spontaneous
  Country: FR (occurrence: FR)
  Receive Date: 20250626
  Receipt Date: 20250626
  Transmission Date: 20250716
  Serious: Yes (Hospitalization, Other)
  Sender: AUROBINDO
  Company Number: FR-ASTRAZENECA-202410GLO026289FR

PATIENT
  Age: 38 Year
  Sex: Female
  Weight: 93 kg

DRUGS (16)
  1. EPIRUBICIN [Suspect]
     Active Substance: EPIRUBICIN
     Indication: Triple negative breast cancer
     Route: 042
     Dates: start: 20240909
  2. CARBOPLATIN [Suspect]
     Active Substance: CARBOPLATIN
     Indication: Triple negative breast cancer
     Route: 042
     Dates: start: 20240902, end: 20240902
  3. CARBOPLATIN [Suspect]
     Active Substance: CARBOPLATIN
     Route: 042
     Dates: start: 20240617, end: 20240805
  4. CARBOPLATIN [Suspect]
     Active Substance: CARBOPLATIN
     Route: 042
     Dates: start: 20240812, end: 20240826
  5. PACLITAXEL [Suspect]
     Active Substance: PACLITAXEL
     Indication: Triple negative breast cancer
     Route: 042
     Dates: start: 20240617, end: 20240902
  6. CYCLOPHOSPHAMIDE [Suspect]
     Active Substance: CYCLOPHOSPHAMIDE
     Indication: Triple negative breast cancer
     Route: 042
     Dates: start: 20240909
  7. PEMBROLIZUMAB [Suspect]
     Active Substance: PEMBROLIZUMAB
     Indication: Triple negative breast cancer
     Route: 042
     Dates: start: 20240617, end: 20241028
  8. PRISTINAMYCIN [Concomitant]
     Active Substance: PRISTINAMYCIN
     Indication: COVID-19
     Dosage: 1 GRAM, TWO TIMES A DAY
     Route: 048
     Dates: start: 20241003
  9. AMOXICILLIN [Concomitant]
     Active Substance: AMOXICILLIN
     Indication: COVID-19
     Route: 048
     Dates: start: 20240920, end: 20240926
  10. Solupred [Concomitant]
     Indication: COVID-19
     Dosage: 60 MILLIGRAM, ONCE A DAY
     Route: 048
     Dates: start: 20241003
  11. VITAMIN A [Concomitant]
     Active Substance: VITAMIN A
     Indication: Dry eye
     Dosage: 1 DROP, 3 TIMES A DAY
     Dates: start: 20241202
  12. ACETAMINOPHEN [Concomitant]
     Active Substance: ACETAMINOPHEN
     Indication: Abdominal pain
     Route: 048
     Dates: start: 20241015
  13. Mucogyne [Concomitant]
     Indication: Vulvovaginal dryness
     Route: 065
     Dates: start: 20250210
  14. LEVOTHYROXINE [Concomitant]
     Active Substance: LEVOTHYROXINE
     Indication: Hypothyroidism
     Route: 048
     Dates: start: 20240902, end: 20240929
  15. LEVOTHYROXINE [Concomitant]
     Active Substance: LEVOTHYROXINE
     Route: 048
     Dates: start: 20240930
  16. Spasfon [Concomitant]
     Indication: Pancreatitis
     Route: 048
     Dates: start: 20241015

REACTIONS (1)
  - Pancreatitis acute [Recovered/Resolved]

NARRATIVE: CASE EVENT DATE: 20241015
